FAERS Safety Report 12428735 (Version 1)
Quarter: 2016Q2

REPORT INFORMATION
  Report Type: Spontaneous
  Country: US (occurrence: US)
  Receive Date: 20160602
  Receipt Date: 20160602
  Transmission Date: 20160815
  Serious: Yes (Other)
  Sender: FDA-Public Use
  Company Number: US-ALEXION PHARMACEUTICALS INC-A201603788

PATIENT
  Age: 6 Year
  Sex: Female

DRUGS (5)
  1. FLUDARABINE [Concomitant]
     Active Substance: FLUDARABINE PHOSPHATE
     Indication: HISTIOCYTOSIS HAEMATOPHAGIC
     Route: 065
  2. SOLIRIS [Suspect]
     Active Substance: ECULIZUMAB
     Indication: OFF LABEL USE
  3. MELPHALAN [Concomitant]
     Active Substance: MELPHALAN
     Indication: HISTIOCYTOSIS HAEMATOPHAGIC
     Route: 065
  4. ALEMTUZUMAB [Concomitant]
     Active Substance: ALEMTUZUMAB
     Indication: HISTIOCYTOSIS HAEMATOPHAGIC
     Route: 065
  5. SOLIRIS [Suspect]
     Active Substance: ECULIZUMAB
     Indication: THROMBOTIC MICROANGIOPATHY
     Route: 042

REACTIONS (2)
  - Small intestinal stenosis [Unknown]
  - Off label use [Unknown]
